FAERS Safety Report 24796401 (Version 5)
Quarter: 2025Q2

REPORT INFORMATION
  Report Type: Report from Study
  Country: US (occurrence: US)
  Receive Date: 20250101
  Receipt Date: 20250515
  Transmission Date: 20250716
  Serious: Yes (Other)
  Sender: SUNOVION
  Company Number: US-SMPA-2024SPA006724

PATIENT

DRUGS (2)
  1. ORGOVYX [Suspect]
     Active Substance: RELUGOLIX
     Indication: Prostate cancer
     Route: 048
  2. ORGOVYX [Suspect]
     Active Substance: RELUGOLIX
     Dosage: 120 MG, QD
     Route: 048
     Dates: start: 20241209

REACTIONS (13)
  - Spinal fusion surgery [Recovering/Resolving]
  - Glaucoma [Unknown]
  - Pain [Unknown]
  - Muscular weakness [Not Recovered/Not Resolved]
  - Dry eye [Unknown]
  - Blood testosterone abnormal [Unknown]
  - Prostatic specific antigen abnormal [Unknown]
  - Blood cholesterol abnormal [Unknown]
  - Dizziness [Unknown]
  - Arthritis [Unknown]
  - Fatigue [Unknown]
  - Arthralgia [Unknown]
  - Incorrect dose administered [Unknown]
